FAERS Safety Report 6030745-1 (Version None)
Quarter: 2009Q1

REPORT INFORMATION
  Report Type: 
  Country: None (occurrence: None)
  Receive Date: 20090106
  Receipt Date: 20081219
  Transmission Date: 20090719
  Serious: Yes (Other)
  Sender: FDA-Public Use
  Company Number: TCI2008A05708

PATIENT
  Age: 79 Year
  Sex: Male

DRUGS (5)
  1. ACTOS [Suspect]
     Indication: TYPE 2 DIABETES MELLITUS
     Dosage: 15 MG (15 MG, 1 IN 1 D) PER ORAL
     Route: 048
     Dates: start: 20080602, end: 20081108
  2. BASEN (VOGLIBOSE) [Concomitant]
  3. AMARYL [Concomitant]
  4. METFORMIN HYDROCHLORIDE [Concomitant]
  5. CONIEL (BENIDIPINE HYDROCHLORIDE) [Concomitant]

REACTIONS (7)
  - CARDIOMEGALY [None]
  - DEHYDRATION [None]
  - ELECTROCARDIOGRAM LOW VOLTAGE [None]
  - MALIGNANT PLEURAL EFFUSION [None]
  - NO THERAPEUTIC RESPONSE [None]
  - OEDEMA PERIPHERAL [None]
  - PULMONARY OEDEMA [None]
